FAERS Safety Report 12472191 (Version 1)
Quarter: 2016Q2

REPORT INFORMATION
  Report Type: Report from Study
  Country: FR (occurrence: FR)
  Receive Date: 20160616
  Receipt Date: 20160616
  Transmission Date: 20160815
  Serious: Yes (Death)
  Sender: FDA-Public Use
  Company Number: FR-PFIZER INC-2016291971

PATIENT

DRUGS (3)
  1. DOXORUBICIN HCL [Suspect]
     Active Substance: DOXORUBICIN HYDROCHLORIDE
     Indication: SARCOMA
     Dosage: 60 MG/M2, EVERY 3 WEEKS (Q3WK)
     Route: 042
  2. MESNA. [Concomitant]
     Active Substance: MESNA
     Dosage: UNK
  3. IFOSFAMIDE. [Suspect]
     Active Substance: IFOSFAMIDE
     Indication: SARCOMA
     Dosage: 6-9 G/M2, EVERY 3 WEEKS (Q3WK)
     Route: 042

REACTIONS (1)
  - Pneumonia [Fatal]
